FAERS Safety Report 13480321 (Version 4)
Quarter: 2017Q2

REPORT INFORMATION
  Report Type: Spontaneous
  Country: IT (occurrence: IT)
  Receive Date: 20170425
  Receipt Date: 20170511
  Transmission Date: 20170830
  Serious: No
  Sender: FDA-Public Use
  Company Number: IT-BIOGEN-2017BV000030

PATIENT
  Age: 7 Year

DRUGS (1)
  1. ELOCTA [Suspect]
     Active Substance: EFMOROCTOCOG ALFA
     Indication: IMMUNE TOLERANCE INDUCTION
     Route: 065

REACTIONS (2)
  - Off label use [Unknown]
  - Immune tolerance induction [Unknown]
